FAERS Safety Report 21642251 (Version 1)
Quarter: 2022Q4

REPORT INFORMATION
  Report Type: Spontaneous
  Country: US (occurrence: US)
  Receive Date: 20221125
  Receipt Date: 20221125
  Transmission Date: 20230113
  Serious: No
  Sender: FDA-Public Use
  Company Number: US-BTGSP-US-BTGSP-22-0107

PATIENT
  Age: 34 Year
  Sex: Female

DRUGS (3)
  1. CROFAB [Suspect]
     Active Substance: CROTALIDAE POLYVALENT IMMUNE FAB (OVINE)
     Indication: Snake bite
     Dosage: 4 VIALS
     Route: 065
     Dates: start: 20220721, end: 20220721
  2. CROFAB [Suspect]
     Active Substance: CROTALIDAE POLYVALENT IMMUNE FAB (OVINE)
     Dosage: 2 VIALS, Q6H X3
     Route: 065
     Dates: start: 20220722, end: 20220722
  3. UNSPECIFIED INGREDIENT [Concomitant]
     Active Substance: UNSPECIFIED INGREDIENT
     Indication: Analgesic therapy
     Dosage: UNK
     Route: 065

REACTIONS (4)
  - Pain [Recovered/Resolved]
  - Platelet count decreased [Unknown]
  - Blood fibrinogen decreased [Unknown]
  - Hypotension [Unknown]

NARRATIVE: CASE EVENT DATE: 20220721
